FAERS Safety Report 24467967 (Version 1)
Quarter: 2024Q4

REPORT INFORMATION
  Report Type: Spontaneous
  Country: US (occurrence: US)
  Receive Date: 20241018
  Receipt Date: 20241018
  Transmission Date: 20250114
  Serious: No
  Sender: UCB
  Company Number: US-UCBSA-2024028252

PATIENT
  Sex: Male

DRUGS (1)
  1. BIMZELX [Suspect]
     Active Substance: BIMEKIZUMAB-BKZX
     Indication: Psoriasis
     Dosage: 320 MILLIGRAM, EV 4 WEEKS, THEN EVERY 8 WEEKS THEREAFTER
     Route: 058
     Dates: start: 20240604

REACTIONS (3)
  - Pain [Recovering/Resolving]
  - Fatigue [Recovering/Resolving]
  - Loss of personal independence in daily activities [Unknown]
